FAERS Safety Report 5788674-4 (Version None)
Quarter: 2008Q2

REPORT INFORMATION
  Report Type: 
  Country: None (occurrence: None)
  Receive Date: 20080626
  Receipt Date: 20080626
  Transmission Date: 20081010
  Serious: Yes (Hospitalization)
  Sender: FDA-Public Use
  Company Number: PHHO2005US06674

PATIENT
  Sex: Female
  Weight: 61.2 kg

DRUGS (3)
  1. DIOVAN [Suspect]
  2. HYDROCHLOROTHIAZIDE [Suspect]
  3. PLACEBO PLACEBO [Suspect]
     Indication: MACULAR DEGENERATION
     Dosage: UNK
     Dates: start: 20030520

REACTIONS (5)
  - COLD SWEAT [None]
  - DIZZINESS [None]
  - HYPERHIDROSIS [None]
  - NAUSEA [None]
  - SYNCOPE [None]
